FAERS Safety Report 20882333 (Version 1)
Quarter: 2022Q2

REPORT INFORMATION
  Report Type: Spontaneous
  Country: FR (occurrence: FR)
  Receive Date: 20220527
  Receipt Date: 20220527
  Transmission Date: 20220721
  Serious: Yes (Disabling, Other)
  Sender: FDA-Public Use
  Company Number: FR-ADVANZ PHARMA-202205003097

PATIENT

DRUGS (2)
  1. ALFUZOSIN [Suspect]
     Active Substance: ALFUZOSIN
     Dosage: 2 DOSAGE FORM, QD (CRUSHED TABLETS DAILY XATRAL FILM-COATED TABLET)
     Route: 065
  2. ALFUZOSIN [Suspect]
     Active Substance: ALFUZOSIN
     Dosage: 3 DOSAGE FORM, QD
     Route: 065

REACTIONS (4)
  - Disability [Unknown]
  - Dysphagia [Unknown]
  - Wrong technique in product usage process [Unknown]
  - Product prescribing issue [Unknown]
